FAERS Safety Report 9199048 (Version 2)
Quarter: 2013Q2

REPORT INFORMATION
  Report Type: Spontaneous
  Country: US (occurrence: None)
  Receive Date: 20130325
  Receipt Date: 20130401
  Transmission Date: 20140414
  Serious: No
  Sender: FDA-Public Use
  Company Number: 2013US-004608

PATIENT
  Age: 46 Year
  Sex: Female
  Weight: 60 kg

DRUGS (21)
  1. OMONTYS [Suspect]
     Indication: NEPHROGENIC ANAEMIA
     Route: 042
     Dates: start: 20130212, end: 20130212
  2. EPOGEN (EPOETIN ALFA) [Concomitant]
  3. ZEMPLAR (PARICALCITOL) [Concomitant]
  4. HYPERTONIC SALINE SOLUTION (SODIUM CHLORIDE) [Concomitant]
  5. ONDANSETRON HCL (ONDANSETRON HYDROCHLORIDE) 12/10/2011 TO ONGOING [Concomitant]
  6. HEPARIN (HEPARIN) [Concomitant]
  7. LOPERAMIDE (LOPERAMIDE) [Concomitant]
  8. ACETAMINOPHEN (PARACETAMOL) [Concomitant]
  9. METOCLOPRAMIDE (METOCLOPRAMIDE) [Concomitant]
  10. BOOST PLUS [Concomitant]
  11. NEPRO (CARBOHYDRATES NOS, FATS NOS, MINERALS NOS, PROTEIN, VITAMINS NOS) [Concomitant]
  12. TYLENOL (PARACETAMOL) [Concomitant]
  13. CLONIDINE (CLONIDINE) [Concomitant]
  14. MINOXIDIL (MINOXIDIL) [Concomitant]
  15. TOPROL (METOPROLOL SUCCINATE) [Concomitant]
  16. LISINOPRIL (LISINOPRIL) [Concomitant]
  17. NIFEDIPINE XL (NIFEDIPINE) [Concomitant]
  18. CADURA (DOXAZOSIN MESILATE) [Concomitant]
  19. LIDOCAINE (LIDOCAINE) [Concomitant]
  20. RENVELA (SEVELAMER CARBONATE) [Concomitant]
  21. SENSIPAR (CINACALCET HYDROCHLORIDE) [Concomitant]

REACTIONS (3)
  - Drug hypersensitivity [None]
  - Dyspnoea [None]
  - Pruritus [None]
